FAERS Safety Report 12526027 (Version 1)
Quarter: 2016Q3

REPORT INFORMATION
  Report Type: Spontaneous
  Country: US (occurrence: None)
  Receive Date: 20160701
  Receipt Date: 20160701
  Transmission Date: 20161109
  Serious: No
  Sender: FDA-Public Use
  Company Number: None

PATIENT
  Age: 72 Year
  Sex: Female

DRUGS (1)
  1. NINLARO [Suspect]
     Active Substance: IXAZOMIB
     Indication: PARAPARESIS
     Dosage: 4 MG, 3 TIMES A MONTH ORAL
     Route: 048
     Dates: start: 20160317

REACTIONS (1)
  - Fatigue [None]

NARRATIVE: CASE EVENT DATE: 20160331
